FAERS Safety Report 16356788 (Version 2)
Quarter: 2019Q2

REPORT INFORMATION
  Report Type: Report from Study
  Country: None (occurrence: TW)
  Receive Date: 20190527
  Receipt Date: 20190619
  Transmission Date: 20190711
  Serious: Yes (Other)
  Sender: FDA-Public Use
  Company Number: TW-ABBVIE-19K-153-2791638-00

PATIENT
  Age: 38 Year
  Sex: Male
  Weight: 86 kg

DRUGS (1)
  1. HUMIRA [Suspect]
     Active Substance: ADALIMUMAB
     Indication: ANKYLOSING SPONDYLITIS
     Route: 058
     Dates: start: 20180424, end: 20190321

REACTIONS (3)
  - Pulmonary tuberculosis [Recovering/Resolving]
  - Oedema peripheral [Recovering/Resolving]
  - Lung infiltration [Recovered/Resolved]

NARRATIVE: CASE EVENT DATE: 20190328
